FAERS Safety Report 11870054 (Version 1)
Quarter: 2015Q4

REPORT INFORMATION
  Report Type: Other
  Country: GB (occurrence: GB)
  Receive Date: 20151228
  Receipt Date: 20151228
  Transmission Date: 20160305
  Serious: Yes (Other)
  Sender: FDA-Public Use
  Company Number: GB-CIPLA LTD.-2015GB09789

PATIENT

DRUGS (4)
  1. PHENYTOIN SODIUM. [Concomitant]
     Active Substance: PHENYTOIN SODIUM
     Route: 065
  2. PANTOPRAZOLE [Suspect]
     Active Substance: PANTOPRAZOLE SODIUM
     Indication: HIATUS HERNIA
     Dosage: 40 MG, QD, AN HOUR BEFORE  EATING  BREAKFAST
     Route: 048
  3. PRAVASTATIN [Suspect]
     Active Substance: PRAVASTATIN\PRAVASTATIN SODIUM
     Indication: BLOOD CHOLESTEROL INCREASED
     Dosage: 10 MG, UNK
     Route: 048
  4. FOLIC ACID. [Suspect]
     Active Substance: FOLIC ACID
     Indication: FOLATE DEFICIENCY
     Dosage: 5 MG, UNK
     Route: 048

REACTIONS (16)
  - Muscle atrophy [Unknown]
  - Disorientation [Unknown]
  - Swelling face [Unknown]
  - Lip swelling [Unknown]
  - Balance disorder [Not Recovered/Not Resolved]
  - Stress urinary incontinence [Unknown]
  - Malaise [Unknown]
  - Dyspepsia [Unknown]
  - Swollen tongue [Unknown]
  - Local swelling [Not Recovered/Not Resolved]
  - Dyspnoea [Unknown]
  - Pyrexia [Unknown]
  - Cough [Unknown]
  - Abdominal distension [Not Recovered/Not Resolved]
  - Hypersensitivity [Unknown]
  - Catarrh [Unknown]

NARRATIVE: CASE EVENT DATE: 20151106
